FAERS Safety Report 20132945 (Version 1)
Quarter: 2021Q4

REPORT INFORMATION
  Report Type: Spontaneous
  Country: CA (occurrence: CA)
  Receive Date: 20211201
  Receipt Date: 20211201
  Transmission Date: 20220304
  Serious: Yes (Hospitalization, Congenital Anomaly, Other)
  Sender: FDA-Public Use
  Company Number: CA-TEVA-2021-CA-1981393

PATIENT
  Sex: Male
  Weight: 2 kg

DRUGS (5)
  1. IBUPROFEN [Suspect]
     Active Substance: IBUPROFEN
     Indication: Toothache
     Route: 064
  2. ACETAMINOPHEN [Concomitant]
     Active Substance: ACETAMINOPHEN
  3. INSULIN LISPRO [Concomitant]
     Active Substance: INSULIN LISPRO
  4. IRON [Concomitant]
     Active Substance: IRON
  5. MINERALS\VITAMINS [Concomitant]
     Active Substance: MINERALS\VITAMINS

REACTIONS (3)
  - Ductus arteriosus premature closure [Unknown]
  - Foetal hypokinesia [Unknown]
  - Oligohydramnios [Unknown]
